FAERS Safety Report 9961063 (Version 1)
Quarter: 2014Q1

REPORT INFORMATION
  Report Type: Report from Study
  Country: US (occurrence: US)
  Receive Date: 20140305
  Receipt Date: 20140305
  Transmission Date: 20141002
  Serious: No
  Sender: FDA-Public Use
  Company Number: US-ABBVIE-13P-163-1108094-00

PATIENT
  Age: 61 Year
  Sex: Female

DRUGS (9)
  1. HUMIRA [Suspect]
     Indication: RHEUMATOID ARTHRITIS
     Route: 058
     Dates: start: 20130502, end: 20130502
  2. HUMIRA [Suspect]
     Route: 058
     Dates: start: 20130512, end: 20130512
  3. HUMIRA [Suspect]
     Route: 058
     Dates: start: 20130601
  4. CITALOPRAM [Concomitant]
     Indication: PRODUCT USED FOR UNKNOWN INDICATION
     Dosage: 10 MG DAILY
  5. TOPAMAX [Concomitant]
     Indication: PRODUCT USED FOR UNKNOWN INDICATION
  6. IMITREX [Concomitant]
     Indication: PRODUCT USED FOR UNKNOWN INDICATION
  7. LIPITOR [Concomitant]
     Indication: PRODUCT USED FOR UNKNOWN INDICATION
     Dosage: 10 MG DAILY
  8. METFORMIN [Concomitant]
     Indication: PRODUCT USED FOR UNKNOWN INDICATION
     Dosage: 2000 MG DAILY
  9. GLIMEPIRIDE [Concomitant]
     Indication: PRODUCT USED FOR UNKNOWN INDICATION
     Dosage: 1 MG DAILY

REACTIONS (1)
  - Inappropriate schedule of drug administration [Not Recovered/Not Resolved]
